FAERS Safety Report 7012844 (Version 3)
Quarter: 2014Q3

REPORT INFORMATION
  Report Type: Spontaneous
  Country: US (occurrence: None)
  Receive Date: 20090526
  Receipt Date: 20140716
  Transmission Date: 20150326
  Serious: Yes (Other)
  Sender: FDA-Public Use
  Company Number: 2009S1004061

PATIENT
  Age: 66 Year
  Sex: Female
  Weight: 78 kg

DRUGS (6)
  1. LIPITOR [Concomitant]
     Active Substance: ATORVASTATIN CALCIUM
  2. MULTIVITAMINS (ERGOCALCIFEROL, ASCORBIC ACID, FOLIC ACID, THIAMINE HYDROCHLORIDE, RETINOL, RIBOFLAVIN, NICOTINAMIDE, PANTHENOL) [Concomitant]
  3. PHOSPHO-SODA [Suspect]
     Active Substance: SODIUM PHOSPHATE, DIBASIC\SODIUM PHOSPHATE, MONOBASIC
     Indication: COLONOSCOPY
     Route: 048
     Dates: start: 20050901, end: 20050901
  4. EVISTA [Concomitant]
     Active Substance: RALOXIFENE HYDROCHLORIDE
  5. CALCIUM (CALCIUM) [Concomitant]
     Active Substance: CALCIUM
  6. NORVASC [Concomitant]
     Active Substance: AMLODIPINE BESYLATE

REACTIONS (3)
  - Renal failure acute [None]
  - Nephrocalcinosis [None]
  - Renal failure chronic [None]

NARRATIVE: CASE EVENT DATE: 200510
